FAERS Safety Report 10050515 (Version 1)
Quarter: 2014Q2

REPORT INFORMATION
  Report Type: Spontaneous
  Country: US (occurrence: US)
  Receive Date: 20140401
  Receipt Date: 20140401
  Transmission Date: 20141212
  Serious: No
  Sender: FDA-Public Use
  Company Number: US-ASTRAZENECA-2013SE83142

PATIENT
  Age: 71 Year
  Sex: Female
  Weight: 55.3 kg

DRUGS (7)
  1. NEXIUM [Suspect]
     Indication: GASTROOESOPHAGEAL REFLUX DISEASE
     Route: 048
  2. ESTROGEN [Concomitant]
  3. GLUCOSAMINE CHONDROTIN [Concomitant]
     Dosage: DAILY
  4. CALCIUM [Concomitant]
     Dosage: DAILY
  5. VITAMINS [Concomitant]
     Dosage: DAILY
  6. NUTRAVU [Concomitant]
     Dosage: DAILY
  7. PROTONIX [Concomitant]

REACTIONS (5)
  - Chest pain [Unknown]
  - Oropharyngeal pain [Unknown]
  - Cough [Unknown]
  - Sleep disorder due to general medical condition, insomnia type [Unknown]
  - Intentional product misuse [Unknown]
